FAERS Safety Report 4314758-3 (Version None)
Quarter: 2004Q1

REPORT INFORMATION
  Report Type: 
  Country: None (occurrence: None)
  Receive Date: 20040308
  Receipt Date: 20040227
  Transmission Date: 20041129
  Serious: Yes (Hospitalization)
  Sender: FDA-Public Use
  Company Number: FR-JNJFOC-20040300033

PATIENT
  Age: 62 Year
  Sex: Female

DRUGS (6)
  1. TRAMADOL HCL [Suspect]
     Dosage: 300 MG, ORAL
     Route: 048
     Dates: start: 20031030
  2. HERCEPTIN [Suspect]
     Indication: BREAST CANCER FEMALE
     Dosage: 154 MG, INTRAVENOUS
     Route: 042
     Dates: start: 20020708
  3. DOCETAXEL (DOCETAXEL) UNSPECIFIED [Suspect]
     Indication: BREAST CANCER FEMALE
  4. LEVOTHYROX (LEVOTHYROX SODIUM) [Concomitant]
  5. LITHIUM CARBONATE [Concomitant]
  6. CLONAZEPAM [Concomitant]

REACTIONS (2)
  - DRUG INTERACTION [None]
  - SYNCOPE VASOVAGAL [None]
